FAERS Safety Report 13551059 (Version 1)
Quarter: 2017Q2

REPORT INFORMATION
  Report Type: Spontaneous
  Country: FR (occurrence: FR)
  Receive Date: 20170516
  Receipt Date: 20170516
  Transmission Date: 20170830
  Serious: Yes (Hospitalization, Other)
  Sender: FDA-Public Use
  Company Number: FR-INDIVIOR LIMITED-INDV-101614-2017

PATIENT
  Age: 57 Year
  Sex: Male

DRUGS (1)
  1. SUBUTEX [Suspect]
     Active Substance: BUPRENORPHINE HYDROCHLORIDE
     Indication: DRUG USE DISORDER
     Dosage: 8 MG, QD
     Route: 042
     Dates: end: 20170417

REACTIONS (4)
  - Circulatory collapse [Unknown]
  - Dermo-hypodermitis [Recovering/Resolving]
  - Necrotising fasciitis [Recovering/Resolving]
  - Intentional product use issue [Recovered/Resolved]

NARRATIVE: CASE EVENT DATE: 20170417
